FAERS Safety Report 6583963-8 (Version None)
Quarter: 2010Q1

REPORT INFORMATION
  Report Type: 
  Country: None (occurrence: None)
  Receive Date: 20100216
  Receipt Date: 20091230
  Transmission Date: 20100710
  Serious: No
  Sender: FDA-Public Use
  Company Number: US-ABBOTT-09P-163-0612856-00

PATIENT
  Sex: Female
  Weight: 55.842 kg

DRUGS (5)
  1. SIMCOR [Suspect]
     Indication: LOW DENSITY LIPOPROTEIN INCREASED
     Dosage: 500/20 MG AT BEDTIME
     Dates: start: 20091204, end: 20091205
  2. PREVACID [Concomitant]
     Indication: DRUG USE FOR UNKNOWN INDICATION
  3. INTERNAL PREMARIN [Concomitant]
     Indication: DRUG USE FOR UNKNOWN INDICATION
  4. DIOVAN [Concomitant]
     Indication: DRUG USE FOR UNKNOWN INDICATION
  5. VITAMINS [Concomitant]
     Indication: DRUG USE FOR UNKNOWN INDICATION

REACTIONS (4)
  - PRURITUS [None]
  - RASH [None]
  - SKIN DISCOLOURATION [None]
  - URTICARIA [None]
